FAERS Safety Report 18054742 (Version 1)
Quarter: 2020Q3

REPORT INFORMATION
  Report Type: Spontaneous
  Country: US (occurrence: US)
  Receive Date: 20200722
  Receipt Date: 20200722
  Transmission Date: 20201103
  Serious: Yes (Hospitalization)
  Sender: FDA-Public Use
  Company Number: None

PATIENT
  Age: 61 Year
  Sex: Male

DRUGS (18)
  1. METOPROL SUC [Concomitant]
  2. TRAZODONE [Concomitant]
     Active Substance: TRAZODONE HYDROCHLORIDE
  3. AMOX/K CLAV [Concomitant]
     Active Substance: AMOXICILLIN\CLAVULANATE POTASSIUM
  4. SENNA [Concomitant]
     Active Substance: SENNA LEAF\SENNOSIDES\SENNOSIDES A AND B
  5. FINASTERIDE. [Concomitant]
     Active Substance: FINASTERIDE
  6. LISINOPRIL. [Concomitant]
     Active Substance: LISINOPRIL
  7. METOCLOPRAM [Concomitant]
     Active Substance: METOCLOPRAMIDE
  8. OXYCODONE AND ACETAMINOPHEN [Concomitant]
     Active Substance: ACETAMINOPHEN\OXYCODONE HYDROCHLORIDE
  9. HUMIRA [Suspect]
     Active Substance: ADALIMUMAB
     Indication: ARTHROPATHY
     Dosage: 1 PEN (40MG) QOWK SQ
     Route: 058
     Dates: start: 20181023
  10. CYCLOBENZAPR [Concomitant]
     Active Substance: CYCLOBENZAPRINE
  11. DOK [Concomitant]
     Active Substance: DOCUSATE SODIUM
  12. CHLORTHALID [Concomitant]
     Active Substance: CHLORTHALIDONE
  13. GABAPENTIN. [Concomitant]
     Active Substance: GABAPENTIN
  14. MELOXICAM. [Concomitant]
     Active Substance: MELOXICAM
  15. CLOBETASOL [Concomitant]
     Active Substance: CLOBETASOL
  16. NAPROXEN. [Concomitant]
     Active Substance: NAPROXEN
  17. DULOXETINE. [Concomitant]
     Active Substance: DULOXETINE
  18. HYDROCO/APAP [Concomitant]
     Active Substance: ACETAMINOPHEN\HYDROCODONE

REACTIONS (1)
  - Spinal operation [None]

NARRATIVE: CASE EVENT DATE: 20200511
